FAERS Safety Report 6608104-X (Version None)
Quarter: 2010Q1

REPORT INFORMATION
  Report Type: 
  Country: None (occurrence: None)
  Receive Date: 20100301
  Receipt Date: 20100223
  Transmission Date: 20100710
  Serious: Yes (Other)
  Sender: FDA-Public Use
  Company Number: US-BRISTOL-MYERS SQUIBB COMPANY-14962872

PATIENT
  Age: 28 Year
  Sex: Male

DRUGS (4)
  1. ABILIFY [Suspect]
     Indication: AFFECTIVE DISORDER
     Route: 048
     Dates: start: 20090922
  2. BUSPAR [Suspect]
     Indication: AFFECTIVE DISORDER
  3. TRAZODONE HCL [Suspect]
     Indication: AFFECTIVE DISORDER
  4. ZOLOFT [Suspect]
     Indication: AFFECTIVE DISORDER

REACTIONS (1)
  - GLYCOSYLATED HAEMOGLOBIN INCREASED [None]
